FAERS Safety Report 25167678 (Version 1)
Quarter: 2025Q2

REPORT INFORMATION
  Report Type: Spontaneous
  Country: US (occurrence: None)
  Receive Date: 20250406
  Receipt Date: 20250406
  Transmission Date: 20250716
  Serious: Yes (Life-Threatening, Hospitalization, Disabling)
  Sender: FDA-CTU
  Company Number: None

PATIENT
  Age: 63 Year
  Sex: Male
  Weight: 108 kg

DRUGS (8)
  1. JARDIANCE [Suspect]
     Active Substance: EMPAGLIFLOZIN
     Indication: Type 2 diabetes mellitus
     Dosage: FREQUENCY : DAILY;?
     Route: 048
  2. Monjara [Concomitant]
  3. METFORMIN [Concomitant]
     Active Substance: METFORMIN HYDROCHLORIDE
  4. PLAVIX [Concomitant]
     Active Substance: CLOPIDOGREL BISULFATE
  5. LOSARTAN [Concomitant]
     Active Substance: LOSARTAN
  6. GLIMEPIRIDE [Concomitant]
     Active Substance: GLIMEPIRIDE
  7. 81mg ASA [Concomitant]
  8. BIOTIN [Concomitant]
     Active Substance: BIOTIN

REACTIONS (7)
  - Osteomyelitis [None]
  - Gangrene [None]
  - Skin ulcer [None]
  - Foot amputation [None]
  - Toe amputation [None]
  - Infection [None]
  - Impaired healing [None]

NARRATIVE: CASE EVENT DATE: 20221028
